FAERS Safety Report 7376003-4 (Version None)
Quarter: 2011Q1

REPORT INFORMATION
  Report Type: 
  Country: None (occurrence: None)
  Receive Date: 20110315
  Receipt Date: 20110307
  Transmission Date: 20110831
  Serious: Yes (Other)
  Sender: FDA-Public Use
  Company Number: 2011SP009256

PATIENT
  Age: 55 Year
  Sex: Female

DRUGS (6)
  1. MIRALAX [Suspect]
     Indication: CONSTIPATION
     Dosage: 17  GM TID, PO
     Route: 048
  2. OXYCODONE [Concomitant]
  3. INHALER [Concomitant]
  4. HORMONE REPLACEMENT [Concomitant]
  5. XANAX [Concomitant]
  6. OXYCONTIN [Concomitant]

REACTIONS (1)
  - NEPHROLITHIASIS [None]
